FAERS Safety Report 7612078-2 (Version None)
Quarter: 2011Q3

REPORT INFORMATION
  Report Type: 
  Country: None (occurrence: None)
  Receive Date: 20110715
  Receipt Date: 20110704
  Transmission Date: 20111222
  Serious: Yes (Hospitalization, Other)
  Sender: FDA-Public Use
  Company Number: KR-ELI_LILLY_AND_COMPANY-KR201105008352

PATIENT
  Sex: Male

DRUGS (3)
  1. ANALGESICS [Concomitant]
     Indication: PAIN MANAGEMENT
     Route: 048
  2. ANALGESICS [Concomitant]
  3. FORTEO [Suspect]
     Indication: OSTEOPOROSIS
     Dosage: 20 UG, QD
     Route: 058
     Dates: start: 20110511, end: 20110501

REACTIONS (3)
  - METASTATIC NEOPLASM [None]
  - LUNG NEOPLASM MALIGNANT [None]
  - HYDROCEPHALUS [None]
